FAERS Safety Report 22126224 (Version 1)
Quarter: 2023Q1

REPORT INFORMATION
  Report Type: Spontaneous
  Country: US (occurrence: US)
  Receive Date: 20230322
  Receipt Date: 20230322
  Transmission Date: 20230418
  Serious: No
  Sender: FDA-Public Use
  Company Number: US-ALLERGAN-2242614US

PATIENT
  Age: 76 Year
  Sex: Female
  Weight: 95.25 kg

DRUGS (1)
  1. LATISSE [Suspect]
     Active Substance: BIMATOPROST
     Indication: Growth of eyelashes
     Dosage: NIGHTLY
     Route: 047
     Dates: start: 2012

REACTIONS (3)
  - Visual impairment [Not Recovered/Not Resolved]
  - Eyelash changes [Not Recovered/Not Resolved]
  - Drug ineffective [Not Recovered/Not Resolved]

NARRATIVE: CASE EVENT DATE: 20220801
